FAERS Safety Report 6112885-1 (Version None)
Quarter: 2009Q1

REPORT INFORMATION
  Report Type: 
  Country: None (occurrence: None)
  Receive Date: 20090310
  Receipt Date: 20090225
  Transmission Date: 20090719
  Serious: Yes (Death, Hospitalization)
  Sender: FDA-Public Use
  Company Number: WAES 0903USA00688

PATIENT
  Age: 31 Year
  Sex: Male

DRUGS (5)
  1. HYZAAR [Suspect]
     Indication: CARDIAC FAILURE CONGESTIVE
     Dosage: 1 TAB DAILY, PO
     Route: 048
     Dates: start: 20070730, end: 20071127
  2. HYZAAR [Suspect]
     Indication: HYPERTENSION
     Dosage: 1 TAB DAILY, PO
     Route: 048
     Dates: start: 20070730, end: 20071127
  3. ADALAT CC [Concomitant]
  4. ALDACTONE [Concomitant]
  5. LASIX (FUROMEMIDE) [Concomitant]

REACTIONS (5)
  - ALANINE AMINOTRANSFERASE INCREASED [None]
  - ASPARTATE AMINOTRANSFERASE INCREASED [None]
  - BLOOD CREATININE INCREASED [None]
  - BLOOD UREA INCREASED [None]
  - HYPERTHERMIA [None]
